FAERS Safety Report 6172610-5 (Version None)
Quarter: 2009Q2

REPORT INFORMATION
  Report Type: 
  Country: None (occurrence: None)
  Receive Date: 20090428
  Receipt Date: 20090427
  Transmission Date: 20091009
  Serious: Yes (Hospitalization)
  Sender: FDA-Public Use
  Company Number: TPA2009A00398

PATIENT
  Age: 61 Year
  Sex: Male
  Weight: 89.2679 kg

DRUGS (3)
  1. ROZEREM [Suspect]
     Indication: INSOMNIA
     Dosage: 8 MG, AT BEDTIME, PER ORAL
     Route: 048
     Dates: start: 20090218, end: 20090311
  2. FLEXERIL [Suspect]
     Indication: MUSCLE SPASMS
     Dosage: 10 MG, Q8HRS, PER ORAL
     Route: 048
  3. FLEXERIL [Suspect]
     Indication: PAIN IN EXTREMITY
     Dosage: 10 MG, Q8HRS, PER ORAL
     Route: 048

REACTIONS (3)
  - BLOOD GLUCOSE INCREASED [None]
  - DRUG INTERACTION [None]
  - HALLUCINATION, VISUAL [None]
